FAERS Safety Report 6668610-9 (Version None)
Quarter: 2010Q2

REPORT INFORMATION
  Report Type: 
  Country: None (occurrence: None)
  Receive Date: 20100406
  Receipt Date: 20100325
  Transmission Date: 20101027
  Serious: Yes (Hospitalization)
  Sender: FDA-Public Use
  Company Number: PHEH2010US02865

PATIENT
  Sex: Female

DRUGS (8)
  1. EXJADE [Suspect]
     Indication: IRON OVERLOAD
     Dosage: 1000 MG, QD
     Route: 048
     Dates: start: 20090729
  2. EXJADE [Suspect]
     Dosage: UNK
  3. NORVASC [Concomitant]
     Indication: HYPERTENSION
     Dosage: UNK
  4. CYCLOSPORINE [Concomitant]
     Indication: APLASTIC ANAEMIA
     Dosage: 100 UNK, BID
     Dates: start: 20091021, end: 20100129
  5. PROTONIX [Concomitant]
     Indication: GASTROOESOPHAGEAL REFLUX DISEASE
     Dosage: 40 UNK, BID
  6. SYNTHROID [Concomitant]
     Indication: HYPOTHYROIDISM
     Dosage: 0.125 G, UNK
  7. LOPRESSOR [Concomitant]
     Indication: HYPERTENSION
     Dosage: 25 G, UNK
  8. IMMUNOSUPPRESSANTS [Concomitant]
     Dosage: UNK
     Dates: start: 20090121

REACTIONS (8)
  - ANAEMIA [None]
  - ASTHENIA [None]
  - DECREASED APPETITE [None]
  - DEHYDRATION [None]
  - FALL [None]
  - GAIT DISTURBANCE [None]
  - RENAL FAILURE ACUTE [None]
  - THROMBOCYTOPENIA [None]
